FAERS Safety Report 13385031 (Version 1)
Quarter: 2017Q1

REPORT INFORMATION
  Report Type: Spontaneous
  Country: US (occurrence: US)
  Receive Date: 20170329
  Receipt Date: 20170329
  Transmission Date: 20170429
  Serious: No
  Sender: FDA-Public Use
  Company Number: US-SMITH AND NEPHEW, INC-2017SMT00007

PATIENT
  Sex: Male
  Weight: 71.2 kg

DRUGS (6)
  1. METFORMIN [Concomitant]
     Active Substance: METFORMIN HYDROCHLORIDE
     Dosage: UNK
     Dates: end: 201612
  2. GABAPENTIN. [Concomitant]
     Active Substance: GABAPENTIN
     Dosage: 400 MG, 2X/DAY
  3. TAMSULOSIN [Concomitant]
     Active Substance: TAMSULOSIN
     Dosage: 0.4 MG, 2X/DAY
  4. CHLORDIAZEPOXIDE. [Concomitant]
     Active Substance: CHLORDIAZEPOXIDE
     Dosage: UNK
  5. COLLAGENASE SANTYL [Suspect]
     Active Substance: COLLAGENASE CLOSTRIDIUM HISTOLYTICUM
     Indication: WOUND
     Dosage: UNK UNK, 3X/WEEK
     Route: 061
     Dates: start: 2016, end: 2016
  6. PREDNISONE. [Concomitant]
     Active Substance: PREDNISONE
     Dosage: 7 MG, 1X/DAY

REACTIONS (6)
  - Application site irritation [Recovered/Resolved]
  - Application site erythema [Recovered/Resolved]
  - Activities of daily living impaired [Recovered/Resolved]
  - Drug ineffective [Recovered/Resolved]
  - Application site pain [Recovered/Resolved]
  - Insomnia [Recovered/Resolved]

NARRATIVE: CASE EVENT DATE: 2016
